FAERS Safety Report 20415810 (Version 1)
Quarter: 2022Q1

REPORT INFORMATION
  Report Type: Spontaneous
  Country: US (occurrence: None)
  Receive Date: 20220201
  Receipt Date: 20220201
  Transmission Date: 20220423
  Serious: Yes (Hospitalization)
  Sender: FDA-Public Use
  Company Number: None

PATIENT
  Age: 75 Year
  Sex: Male
  Weight: 194 kg

DRUGS (1)
  1. EMPAGLIFLOZIN [Suspect]
     Active Substance: EMPAGLIFLOZIN
     Indication: Diabetes mellitus
     Dosage: 12.5 MG EVERY DAY PO?
     Route: 048
     Dates: start: 20190515, end: 20190812

REACTIONS (4)
  - Chills [None]
  - Asthenia [None]
  - Dizziness [None]
  - Urosepsis [None]

NARRATIVE: CASE EVENT DATE: 20190708
